FAERS Safety Report 6886414-9 (Version None)
Quarter: 2010Q3

REPORT INFORMATION
  Report Type: 
  Country: None (occurrence: None)
  Receive Date: 20100729
  Receipt Date: 20090130
  Transmission Date: 20110219
  Serious: No
  Sender: FDA-Public Use
  Company Number: US-PFIZER INC-2009164336

PATIENT
  Age: 74 Year
  Sex: Male
  Weight: 104.31 kg

DRUGS (3)
  1. CELEBREX [Suspect]
     Indication: ARTHRITIS
     Dosage: 200 MG, 1X/DAY
     Dates: start: 20090129
  2. ATENOLOL [Concomitant]
     Indication: HYPERTENSION
     Dosage: UNK
  3. CORTISONE [Concomitant]
     Dates: start: 20090129

REACTIONS (1)
  - TENSION [None]
